FAERS Safety Report 6910311-3 (Version None)
Quarter: 2010Q3

REPORT INFORMATION
  Report Type: 
  Country: None (occurrence: None)
  Receive Date: 20100806
  Receipt Date: 20100727
  Transmission Date: 20110219
  Serious: Yes (Death, Other)
  Sender: FDA-Public Use
  Company Number: US-PFIZER INC-2005156969

PATIENT
  Sex: Male

DRUGS (7)
  1. NEURONTIN [Suspect]
     Indication: BACK PAIN
     Dosage: 300 MG, 3X/DAY
     Dates: start: 20020122
  2. NEURONTIN [Suspect]
     Indication: CONVULSION
  3. METHADONE HCL [Concomitant]
     Dosage: UNK
  4. XANAX [Concomitant]
     Dosage: UNK
  5. LORTAB [Concomitant]
     Dosage: UNK
  6. SKELAXIN [Concomitant]
     Dosage: UNK
  7. VIOXX [Concomitant]
     Dosage: UNK

REACTIONS (6)
  - COMPLETED SUICIDE [None]
  - DRUG INEFFECTIVE [None]
  - GAIT DISTURBANCE [None]
  - GUN SHOT WOUND [None]
  - SUBARACHNOID HAEMORRHAGE [None]
  - TRAUMATIC BRAIN INJURY [None]
